FAERS Safety Report 17843049 (Version 4)
Quarter: 2020Q4

REPORT INFORMATION
  Report Type: Report from Study
  Country: US (occurrence: US)
  Receive Date: 20200530
  Receipt Date: 20201207
  Transmission Date: 20210113
  Serious: No
  Sender: FDA-Public Use
  Company Number: NVSC2020US148833

PATIENT
  Sex: Female

DRUGS (1)
  1. COSENTYX [Suspect]
     Active Substance: SECUKINUMAB
     Indication: PSORIATIC ARTHROPATHY
     Dosage: 300 MG, QMO (ONCE WEEKLY FOR 5 WEEKS, THEN ONCE EVERY 4 WEEKS)
     Route: 058
     Dates: start: 20200520

REACTIONS (3)
  - Throat irritation [Recovered/Resolved]
  - Psoriasis [Unknown]
  - Illness [Recovered/Resolved]
